FAERS Safety Report 9432558 (Version 5)
Quarter: 2014Q1

REPORT INFORMATION
  Report Type: Spontaneous
  Country: ES (occurrence: ES)
  Receive Date: 20130731
  Receipt Date: 20140203
  Transmission Date: 20141002
  Serious: Yes (Hospitalization, Other)
  Sender: FDA-Public Use
  Company Number: ES-ROCHE-1254823

PATIENT
  Age: 55 Year
  Sex: Male
  Weight: 86 kg

DRUGS (9)
  1. ROACTEMRA [Suspect]
     Indication: RHEUMATOID ARTHRITIS
     Route: 042
     Dates: start: 20120921, end: 20130701
  2. ROACTEMRA [Suspect]
     Route: 042
     Dates: start: 20130405
  3. ROACTEMRA [Suspect]
     Route: 042
     Dates: start: 20130507
  4. ROACTEMRA [Suspect]
     Route: 042
     Dates: start: 20130604
  5. ROACTEMRA [Suspect]
     Route: 042
     Dates: start: 20130701
  6. METHOTREXATE [Concomitant]
     Indication: RHEUMATOID ARTHRITIS
     Route: 048
     Dates: start: 20120130, end: 20130725
  7. PREDNISONE [Concomitant]
     Route: 048
  8. FOLIC ACID [Concomitant]
     Route: 048
  9. IDEOS [Concomitant]

REACTIONS (3)
  - Lupus-like syndrome [Recovering/Resolving]
  - Proteinuria [Recovering/Resolving]
  - Cytomegalovirus infection [Recovered/Resolved]
